FAERS Safety Report 7170642-1 (Version None)
Quarter: 2010Q4

REPORT INFORMATION
  Report Type: 
  Country: None (occurrence: None)
  Receive Date: 20101217
  Receipt Date: 20101213
  Transmission Date: 20110411
  Serious: Yes (Death)
  Sender: FDA-Public Use
  Company Number: A0900186A

PATIENT
  Age: 4 Year
  Sex: Male

DRUGS (2)
  1. ZANAMIVIR [Suspect]
     Route: 042
  2. TAMIFLU [Concomitant]
     Route: 050

REACTIONS (2)
  - ACUTE RESPIRATORY DISTRESS SYNDROME [None]
  - PNEUMONIA STAPHYLOCOCCAL [None]
